FAERS Safety Report 4339455-X (Version None)
Quarter: 2004Q2

REPORT INFORMATION
  Report Type: 
  Country: None (occurrence: None)
  Receive Date: 20040412
  Receipt Date: 20040405
  Transmission Date: 20050107
  Serious: Yes (Life-Threatening, Hospitalization)
  Sender: FDA-Public Use
  Company Number: 2004-03-0399

PATIENT
  Age: 55 Year
  Sex: Male
  Weight: 73 kg

DRUGS (2)
  1. TEMOZOLOMIDE CAPSULES [Suspect]
     Indication: GLIOBLASTOMA MULTIFORME
     Dosage: 180 MG QD  ORAL
     Route: 048
     Dates: start: 20030915, end: 20031125
  2. RADIATION THERAPY [Suspect]
     Indication: GLIOBLASTOMA MULTIFORME
     Dosage: 2 GY/D 5X/WK
     Dates: start: 20031217, end: 20040126

REACTIONS (12)
  - BRAIN ABSCESS [None]
  - GLIOBLASTOMA MULTIFORME [None]
  - HAEMOGLOBIN DECREASED [None]
  - IMMUNOSUPPRESSION [None]
  - KAPOSI'S SARCOMA [None]
  - LISTERIOSIS [None]
  - LYMPHOCYTE COUNT DECREASED [None]
  - MALIGNANT NEOPLASM PROGRESSION [None]
  - NEUTROPHIL COUNT DECREASED [None]
  - PNEUMOCYSTIS CARINII PNEUMONIA [None]
  - THROMBOCYTOPENIA [None]
  - WHITE BLOOD CELL COUNT DECREASED [None]
